FAERS Safety Report 18264504 (Version 4)
Quarter: 2020Q4

REPORT INFORMATION
  Report Type: Report from Study
  Country: CA (occurrence: CA)
  Receive Date: 20200914
  Receipt Date: 20201012
  Transmission Date: 20210113
  Serious: Yes (Hospitalization)
  Sender: FDA-Public Use
  Company Number: CA-SAMSUNG BIOEPIS-SB-2020-28523

PATIENT
  Sex: Female
  Weight: 60.1 kg

DRUGS (1)
  1. RENFLEXIS [Suspect]
     Active Substance: INFLIXIMAB-ABDA
     Indication: COLITIS ULCERATIVE
     Route: 042
     Dates: start: 20190115

REACTIONS (10)
  - Illness [Unknown]
  - Herpes zoster [Recovered/Resolved]
  - Drug clearance increased [Unknown]
  - Off label use [Unknown]
  - Haemorrhagic ovarian cyst [Unknown]
  - Eczema [Unknown]
  - Herpes simplex [Unknown]
  - Inappropriate schedule of product administration [Unknown]
  - Eczema herpeticum [Unknown]
  - Varicella zoster virus infection [Unknown]
